FAERS Safety Report 9408497 (Version 1)
Quarter: 2013Q3

REPORT INFORMATION
  Report Type: Spontaneous
  Country: NL (occurrence: NL)
  Receive Date: 20130718
  Receipt Date: 20130718
  Transmission Date: 20140515
  Serious: Yes (Other)
  Sender: FDA-Public Use
  Company Number: NL-GILEAD-2013-0076834

PATIENT
  Age: 31 Year
  Sex: Female

DRUGS (10)
  1. EVIPLERA [Suspect]
     Indication: HIV INFECTION
     Dosage: UNK
     Dates: start: 20130501, end: 20130613
  2. TRUVADA [Concomitant]
     Indication: HIV INFECTION
     Dosage: UNK
     Dates: start: 2010, end: 20130430
  3. ATAZANAVIR [Concomitant]
     Indication: HIV INFECTION
     Dosage: UNK
     Dates: start: 2010, end: 20130430
  4. RITONAVIR [Concomitant]
     Indication: HIV INFECTION
     Dosage: UNK
     Dates: start: 2010, end: 20130430
  5. RITALIN [Concomitant]
     Dosage: 10 MG, UNK
     Route: 048
  6. SEROQUEL [Concomitant]
     Indication: DEPRESSION
     Dosage: 50 MG, UNK
     Route: 048
  7. OXAZEPAM [Concomitant]
     Indication: DEPRESSION
     Dosage: 50 MG, UNK
     Route: 048
  8. AKINETON                           /00079501/ [Concomitant]
     Indication: DEPRESSION
     Route: 048
  9. ZOPICLONE [Concomitant]
     Indication: SLEEP DISORDER
     Dosage: 7.5 MG, UNK
  10. RANITIDINE [Concomitant]
     Indication: GASTRIC DISORDER
     Dosage: 300 MG, UNK

REACTIONS (3)
  - Hallucination [Recovered/Resolved]
  - Delusion [Recovered/Resolved]
  - Anxiety [Recovered/Resolved]
